FAERS Safety Report 21609724 (Version 1)
Quarter: 2022Q4

REPORT INFORMATION
  Report Type: Report from Study
  Country: BR (occurrence: BR)
  Receive Date: 20221117
  Receipt Date: 20221117
  Transmission Date: 20230112
  Serious: Yes (Other)
  Sender: FDA-Public Use
  Company Number: BR-JNJFOC-20221125251

PATIENT
  Age: 5 Decade
  Sex: Female
  Weight: 70 kg

DRUGS (1)
  1. REMICADE [Suspect]
     Active Substance: INFLIXIMAB
     Indication: Ankylosing spondylitis
     Dosage: 4 VIALS
     Route: 041
     Dates: start: 20190116, end: 2019

REACTIONS (2)
  - Respiratory failure [Recovered/Resolved]
  - Infusion related reaction [Recovered/Resolved]
